FAERS Safety Report 9159944 (Version 1)
Quarter: 2013Q1

REPORT INFORMATION
  Report Type: Spontaneous
  Country: US (occurrence: US)
  Receive Date: 20130313
  Receipt Date: 20130313
  Transmission Date: 20140127
  Serious: No
  Sender: FDA-Public Use
  Company Number: US-BAYER-2013-025573

PATIENT
  Age: 33 Year
  Sex: Female
  Weight: 88 kg

DRUGS (13)
  1. BETASERON [Suspect]
     Dosage: 0.3 MG, UNK
  2. LISINOPRIL [Concomitant]
  3. CITALOPRAM [Concomitant]
  4. PREVACID [Concomitant]
  5. METFORMIN [Concomitant]
  6. NEURONTIN [Concomitant]
  7. VITAMIN C [ASCORBIC ACID,SODIUM ASCORBATE] [Concomitant]
  8. IBUPROFEN [IBUPROFEN] [Concomitant]
  9. VITAMIN E [TOCOPHERYL ACETATE] [Concomitant]
  10. VITAMIN A + D [COLECALCIFEROL,RETINOL] [Concomitant]
  11. ECHINACEA [Concomitant]
  12. ADRENAL CORTICAL EXTRACT [Concomitant]
  13. METAMUCIL [GLUCOSE MONOHYDRATE,PLANTAGO OVATA HUSK] [Concomitant]

REACTIONS (2)
  - Contusion [Recovered/Resolved]
  - Influenza like illness [Recovered/Resolved]
